FAERS Safety Report 7640864-1 (Version None)
Quarter: 2011Q3

REPORT INFORMATION
  Report Type: 
  Country: None (occurrence: None)
  Receive Date: 20110722
  Receipt Date: 20110706
  Transmission Date: 20111222
  Serious: Yes (Hospitalization, Other)
  Sender: FDA-Public Use
  Company Number: 2011MA008448

PATIENT
  Age: 68 Year
  Sex: Female

DRUGS (1)
  1. FEVERALL [Suspect]
     Indication: OVERDOSE
     Dosage: 25 GM, X1

REACTIONS (5)
  - SUBENDOCARDIAL ISCHAEMIA [None]
  - HYPOTENSION [None]
  - OVERDOSE [None]
  - MYOCARDIAL INFARCTION [None]
  - LEFT VENTRICULAR DYSFUNCTION [None]
